FAERS Safety Report 8825528 (Version 3)
Quarter: 2012Q4

REPORT INFORMATION
  Report Type: 
  Country: JP (occurrence: JP)
  Receive Date: 20121004
  Receipt Date: 20121227
  Transmission Date: 20130627
  Serious: Yes (Hospitalization)
  Sender: FDA-Public Use
  Company Number: JP-009507513-1210JPN001719

PATIENT
  Age: 63 Year
  Sex: Male
  Weight: 60 kg

DRUGS (14)
  1. REBETOL [Suspect]
     Indication: CHRONIC HEPATITIS C
     Dosage: 600 mg, qd
     Route: 048
     Dates: start: 20120905, end: 20120908
  2. REBETOL [Suspect]
     Dosage: 600 mg, qd
     Route: 048
     Dates: start: 20120919, end: 20120924
  3. REBETOL [Suspect]
     Dosage: 400 mg, qd
     Route: 048
     Dates: start: 20120925, end: 20121004
  4. REBETOL [Suspect]
     Dosage: 200 mg, qd
     Route: 048
     Dates: start: 20121005, end: 20121010
  5. PEGINTRON [Suspect]
     Indication: CHRONIC HEPATITIS C
     Dosage: 80 Microgram, qw
     Route: 058
     Dates: start: 20120905, end: 20120905
  6. PEGINTRON [Suspect]
     Dosage: 80 Microgram, qw
     Route: 058
     Dates: start: 20120919, end: 20121003
  7. TELAVIC [Suspect]
     Indication: CHRONIC HEPATITIS C
     Dosage: 2250 mg, qd
     Route: 048
     Dates: start: 20120905, end: 20120908
  8. TELAVIC [Suspect]
     Dosage: 1500 mg, qd
     Route: 048
     Dates: start: 20120919, end: 20120922
  9. TELAVIC [Suspect]
     Dosage: 1250 mg, qd
     Route: 048
     Dates: start: 20120923, end: 20121009
  10. TELAVIC [Suspect]
     Dosage: 1000 mg, qd
     Route: 048
     Dates: start: 20121010, end: 20121010
  11. LOXONIN [Suspect]
     Indication: PROPHYLAXIS
     Dosage: 180 mg, qd
     Route: 048
     Dates: start: 20120905
  12. URDESTON [Concomitant]
     Indication: CHRONIC HEPATITIS C
     Dosage: 600 mg, qd
     Route: 048
  13. MUCOSTA [Concomitant]
     Indication: PROPHYLAXIS
     Dosage: 300 mg, qd
     Route: 048
     Dates: start: 20120905
  14. GASMOTIN [Concomitant]
     Indication: PROPHYLAXIS
     Dosage: 15 mg, qd
     Route: 048
     Dates: start: 20120907

REACTIONS (2)
  - Renal impairment [Recovering/Resolving]
  - Palpitations [Recovering/Resolving]
